FAERS Safety Report 23273739 (Version 1)
Quarter: 2023Q4

REPORT INFORMATION
  Report Type: Spontaneous
  Country: US (occurrence: US)
  Receive Date: 20231207
  Receipt Date: 20231207
  Transmission Date: 20240110
  Serious: No
  Sender: FDA-Public Use
  Company Number: US-BRISTOL-MYERS SQUIBB COMPANY-2023-174498

PATIENT
  Age: 20 Year
  Sex: Male
  Weight: 61.69 kg

DRUGS (1)
  1. ORENCIA [Suspect]
     Active Substance: ABATACEPT
     Indication: Scleroderma
     Route: 058
     Dates: start: 202308

REACTIONS (2)
  - Device delivery system issue [Unknown]
  - Off label use [Unknown]
